FAERS Safety Report 6052139-5 (Version None)
Quarter: 2009Q1

REPORT INFORMATION
  Report Type: 
  Country: None (occurrence: None)
  Receive Date: 20090126
  Receipt Date: 20090120
  Transmission Date: 20090719
  Serious: Yes (Hospitalization)
  Sender: FDA-Public Use
  Company Number: PHHO2008US12583

PATIENT
  Sex: Male
  Weight: 99.79 kg

DRUGS (6)
  1. BLINDED ALISKIREN ALI+TAB+HT [Suspect]
     Indication: ESSENTIAL HYPERTENSION
     Dosage: CODE NOT BROKEN
     Route: 048
     Dates: start: 20080715
  2. BLINDED NO TREATMENT RECEIVED NOMED [Suspect]
     Indication: ESSENTIAL HYPERTENSION
     Dosage: CODE NOT BROKEN
     Route: 048
     Dates: start: 20080715
  3. BLINDED RAMIPRIL COMP-RAM+ [Suspect]
     Indication: ESSENTIAL HYPERTENSION
     Dosage: CODE NOT BROKEN
     Route: 048
     Dates: start: 20080715
  4. HYDROCHLOROTHIAZIDE [Suspect]
     Indication: HYPERTENSION
     Dosage: UNK
     Route: 048
     Dates: start: 20080813
  5. LESCOL [Concomitant]
     Indication: HYPERLIPIDAEMIA
  6. LODINE [Concomitant]
     Indication: ARTHRALGIA

REACTIONS (3)
  - DIZZINESS [None]
  - PARAESTHESIA [None]
  - TRANSIENT ISCHAEMIC ATTACK [None]
